FAERS Safety Report 7250118-3 (Version None)
Quarter: 2011Q1

REPORT INFORMATION
  Report Type: 
  Country: None (occurrence: None)
  Receive Date: 20110128
  Receipt Date: 20101220
  Transmission Date: 20110831
  Serious: Yes (Hospitalization)
  Sender: FDA-Public Use
  Company Number: US-BAYER-201016016NA

PATIENT
  Sex: Female
  Weight: 119 kg

DRUGS (2)
  1. YAZ [Suspect]
     Indication: ORAL CONTRACEPTION
     Dates: start: 20060801, end: 20091201
  2. YASMIN [Suspect]
     Indication: PRODUCT USED FOR UNKNOWN INDICATION

REACTIONS (2)
  - CHOLECYSTITIS ACUTE [None]
  - ABDOMINAL PAIN UPPER [None]
